FAERS Safety Report 23478422 (Version 1)
Quarter: 2024Q1

REPORT INFORMATION
  Report Type: Report from Study
  Country: AT (occurrence: AT)
  Receive Date: 20240204
  Receipt Date: 20240204
  Transmission Date: 20240409
  Serious: No
  Sender: FDA-Public Use
  Company Number: AT-IPSEN Group, Research and Development-2023-25957

PATIENT

DRUGS (1)
  1. CABOMETYX [Suspect]
     Active Substance: CABOZANTINIB S-MALATE
     Indication: Renal cell carcinoma

REACTIONS (3)
  - Disease progression [Unknown]
  - Unevaluable event [Unknown]
  - Drug intolerance [Unknown]
